FAERS Safety Report 14472713 (Version 3)
Quarter: 2018Q2

REPORT INFORMATION
  Report Type: Spontaneous
  Country: US (occurrence: US)
  Receive Date: 20180201
  Receipt Date: 20180621
  Transmission Date: 20180711
  Serious: Yes (Other)
  Sender: FDA-Public Use
  Company Number: US-UCBSA-2018002976

PATIENT
  Age: 53 Year
  Sex: Male

DRUGS (1)
  1. CIMZIA [Suspect]
     Active Substance: CERTOLIZUMAB PEGOL
     Indication: PRODUCT USED FOR UNKNOWN INDICATION
     Dosage: STREGNTH: 200 MG/ML; NDC # 50474071079

REACTIONS (3)
  - Oesophageal compression [Recovering/Resolving]
  - Diarrhoea [Unknown]
  - Fungal infection [Unknown]

NARRATIVE: CASE EVENT DATE: 20170122
